FAERS Safety Report 4773236-8 (Version None)
Quarter: 2005Q3

REPORT INFORMATION
  Report Type: 
  Country: None (occurrence: None)
  Receive Date: 20050916
  Receipt Date: 20050907
  Transmission Date: 20060218
  Serious: Yes (Other)
  Sender: FDA-Public Use
  Company Number: 2005125197

PATIENT
  Sex: Male
  Weight: 40.8237 kg

DRUGS (12)
  1. LIPITOR [Suspect]
     Indication: BLOOD CHOLESTEROL
     Dosage: 10 MG (10 MG, 1 IN 1 D),
     Dates: end: 20050101
  2. CELLCEPT [Concomitant]
  3. PROGRAF [Concomitant]
  4. PREDNISONE [Concomitant]
  5. NADOLOL [Concomitant]
  6. PREVACID [Concomitant]
  7. MULTIVITAMIN [Concomitant]
  8. VITAMIN C (VITAMIN C) [Concomitant]
  9. BACLOFEN [Concomitant]
  10. DIFLUCAN [Concomitant]
  11. NORTRIPTYLINE HCL [Concomitant]
  12. TYLENOL W/ CODEINE NO. 3 [Concomitant]

REACTIONS (5)
  - AMMONIA ABNORMAL [None]
  - BLOOD ALBUMIN DECREASED [None]
  - HEPATIC ENZYME INCREASED [None]
  - HEPATOCELLULAR DAMAGE [None]
  - ORAL INTAKE REDUCED [None]
